FAERS Safety Report 25396433 (Version 1)
Quarter: 2025Q2

REPORT INFORMATION
  Report Type: Spontaneous
  Country: FR (occurrence: FR)
  Receive Date: 20250604
  Receipt Date: 20250604
  Transmission Date: 20250717
  Serious: Yes (Other)
  Sender: GLAXOSMITHKLINE
  Company Number: None

PATIENT

DRUGS (1)
  1. JEMPERLI [Suspect]
     Active Substance: DOSTARLIMAB-GXLY
     Indication: Endometrial cancer
     Route: 042
     Dates: start: 20250407

REACTIONS (2)
  - Myocarditis [Not Recovered/Not Resolved]
  - Troponin I increased [Not Recovered/Not Resolved]

NARRATIVE: CASE EVENT DATE: 20250506
